FAERS Safety Report 20729985 (Version 3)
Quarter: 2022Q2

REPORT INFORMATION
  Report Type: Spontaneous
  Country: US (occurrence: US)
  Receive Date: 20220420
  Receipt Date: 20220519
  Transmission Date: 20220721
  Serious: No
  Sender: FDA-Public Use
  Company Number: US-PFIZER INC-202101850671

PATIENT
  Age: 57 Year
  Sex: Female

DRUGS (2)
  1. IBRANCE [Suspect]
     Active Substance: PALBOCICLIB
     Indication: Uterine leiomyosarcoma
     Dosage: 125 MG
     Dates: start: 20211222, end: 20220429
  2. IBRANCE [Suspect]
     Active Substance: PALBOCICLIB
     Dosage: 125 MG
     Dates: start: 20220105

REACTIONS (5)
  - Off label use [Unknown]
  - Diarrhoea [Recovered/Resolved]
  - Rash [Recovering/Resolving]
  - Hypoaesthesia [Unknown]
  - Neoplasm progression [Unknown]

NARRATIVE: CASE EVENT DATE: 20211222
